FAERS Safety Report 8915442 (Version 1)
Quarter: 2012Q4

REPORT INFORMATION
  Report Type: 
  Country: US (occurrence: US)
  Receive Date: 20121119
  Receipt Date: 20121119
  Transmission Date: 20130627
  Serious: Yes (Other)
  Sender: FDA-Public Use
  Company Number: US-PFIZER INC-2012286837

PATIENT
  Age: 51 Year
  Sex: Female
  Weight: 90.7 kg

DRUGS (1)
  1. LIPITOR [Suspect]
     Indication: HEART DISORDER
     Dosage: UNK

REACTIONS (1)
  - Cardiac valve disease [Unknown]
